FAERS Safety Report 5053614-2 (Version None)
Quarter: 2006Q3

REPORT INFORMATION
  Report Type: 
  Country: None (occurrence: None)
  Receive Date: 20060712
  Receipt Date: 20060703
  Transmission Date: 20061208
  Serious: Yes (Hospitalization)
  Sender: FDA-Public Use
  Company Number: HQWYE561105JUL06

PATIENT
  Age: 44 Year
  Sex: Male

DRUGS (1)
  1. SIROLIMUS (SIROLIMUS, TABLET) [Suspect]
     Indication: PROPHYLAXIS AGAINST TRANSPLANT REJECTION
     Dates: start: 20051121, end: 20060620

REACTIONS (2)
  - ABDOMINAL HERNIA [None]
  - POST PROCEDURAL COMPLICATION [None]
